FAERS Safety Report 20588586 (Version 2)
Quarter: 2022Q2

REPORT INFORMATION
  Report Type: Spontaneous
  Country: US (occurrence: US)
  Receive Date: 20220314
  Receipt Date: 20220610
  Transmission Date: 20220721
  Serious: No
  Sender: FDA-Public Use
  Company Number: US-Global Blood Therapeutics Inc-US-GBT-22-00861

PATIENT
  Sex: Male
  Weight: 65.32 kg

DRUGS (10)
  1. OXBRYTA [Suspect]
     Active Substance: VOXELOTOR
     Indication: Sickle cell disease
     Route: 048
     Dates: start: 2021, end: 2021
  2. OXBRYTA [Suspect]
     Active Substance: VOXELOTOR
     Dosage: FOR 2 WEEKS, THEN INCREASE
     Route: 048
  3. OXBRYTA [Suspect]
     Active Substance: VOXELOTOR
     Route: 048
  4. PFIZER-BIONTECH COVID-19 VACCINE [Concomitant]
     Active Substance: TOZINAMERAN
     Indication: COVID-19
     Dosage: NOT PROVIDED
     Dates: start: 202109
  5. OXYCODONE [Concomitant]
     Active Substance: OXYCODONE
     Indication: Sickle cell disease
     Dosage: 5-325MG, 1-2 TABLETS
     Route: 048
  6. FOLIC ACID [Concomitant]
     Active Substance: FOLIC ACID
     Indication: Product used for unknown indication
     Route: 048
  7. LISINOPRIL [Concomitant]
     Active Substance: LISINOPRIL
     Indication: Diastolic dysfunction
     Route: 048
  8. HYDROXYUREA [Concomitant]
     Active Substance: HYDROXYUREA
     Indication: Sickle cell disease
     Route: 048
  9. VITAMIN D [Concomitant]
     Active Substance: VITAMIN D NOS
     Indication: Vitamin D deficiency
     Route: 048
  10. OXYGEN [Concomitant]
     Active Substance: OXYGEN
     Indication: Diastolic dysfunction
     Dosage: NOT PROVIDED

REACTIONS (5)
  - Abdominal pain upper [Unknown]
  - Abdominal discomfort [Unknown]
  - Diarrhoea [Unknown]
  - Drug intolerance [Unknown]
  - Off label use [Unknown]

NARRATIVE: CASE EVENT DATE: 20210101
